FAERS Safety Report 5801820-9 (Version None)
Quarter: 2008Q3

REPORT INFORMATION
  Report Type: 
  Country: None (occurrence: None)
  Receive Date: 20080707
  Receipt Date: 20080627
  Transmission Date: 20090109
  Serious: Yes (Hospitalization, Other)
  Sender: FDA-Public Use
  Company Number: US-MERCK-0509USA04012

PATIENT
  Age: 77 Year
  Sex: Female
  Weight: 52 kg

DRUGS (4)
  1. FOSAMAX [Suspect]
     Indication: OSTEOPOROSIS
     Route: 048
     Dates: start: 19970101
  2. FOSAMAX [Suspect]
     Route: 048
     Dates: start: 20060211
  3. FOSAMAX [Suspect]
     Route: 048
     Dates: end: 20050701
  4. FOSAMAX PLUS D [Suspect]
     Route: 048

REACTIONS (11)
  - ANXIETY [None]
  - BLADDER PROLAPSE [None]
  - CHILLS [None]
  - FALL [None]
  - HEAD INJURY [None]
  - IMPAIRED HEALING [None]
  - ONYCHOMYCOSIS [None]
  - OSTEONECROSIS [None]
  - RETCHING [None]
  - SPINAL COMPRESSION FRACTURE [None]
  - VAGINAL DISORDER [None]
